FAERS Safety Report 14250005 (Version 4)
Quarter: 2018Q1

REPORT INFORMATION
  Report Type: Report from Study
  Country: BR (occurrence: BR)
  Receive Date: 20171205
  Receipt Date: 20180131
  Transmission Date: 20180508
  Serious: Yes (Hospitalization, Other)
  Sender: FDA-Public Use
  Company Number: BR-BRISTOL-MYERS SQUIBB COMPANY-BMS-2017-108473

PATIENT
  Age: 61 Year
  Sex: Female
  Weight: 76 kg

DRUGS (9)
  1. AMITRIPTYLINE [Concomitant]
     Active Substance: AMITRIPTYLINE
     Indication: PRODUCT USED FOR UNKNOWN INDICATION
     Dosage: 25 MG, UNK
     Route: 048
     Dates: start: 2012
  2. GABAPENTIN. [Concomitant]
     Active Substance: GABAPENTIN
     Indication: PRODUCT USED FOR UNKNOWN INDICATION
     Dosage: 300 MG, UNK
     Route: 048
     Dates: start: 2016
  3. MORPHINE [Concomitant]
     Active Substance: MORPHINE
     Indication: PRODUCT USED FOR UNKNOWN INDICATION
     Dosage: 10 MG, UNK
     Route: 048
     Dates: start: 2014
  4. NIVOLUMAB [Suspect]
     Active Substance: NIVOLUMAB
     Indication: NON-SMALL CELL LUNG CANCER
     Dosage: 3 MG/KG, UNK
     Route: 065
     Dates: start: 20160212, end: 20180112
  5. LEVOTHYROXINE. [Concomitant]
     Active Substance: LEVOTHYROXINE
     Indication: PRODUCT USED FOR UNKNOWN INDICATION
     Dosage: 25 MG, UNK
     Route: 048
     Dates: start: 201605
  6. ALENIA                             /01538101/ [Concomitant]
     Active Substance: BUDESONIDE\FORMOTEROL FUMARATE
     Indication: PRODUCT USED FOR UNKNOWN INDICATION
     Dosage: 3 UNK, UNK
     Route: 048
     Dates: start: 20160808
  7. CLONAZEPAM. [Concomitant]
     Active Substance: CLONAZEPAM
     Indication: PRODUCT USED FOR UNKNOWN INDICATION
     Dosage: 2 MG, UNK
     Route: 048
     Dates: start: 2012
  8. DIPYRONE [Concomitant]
     Active Substance: DIPYRONE
     Indication: PRODUCT USED FOR UNKNOWN INDICATION
     Dosage: 500 UNK, UNK
     Route: 048
     Dates: start: 2014
  9. PHENYTOIN. [Concomitant]
     Active Substance: PHENYTOIN
     Indication: PRODUCT USED FOR UNKNOWN INDICATION
     Dosage: 300 MG, UNK
     Route: 048
     Dates: start: 201502

REACTIONS (1)
  - Peripheral motor neuropathy [Recovered/Resolved]

NARRATIVE: CASE EVENT DATE: 20171113
